FAERS Safety Report 4885931-0 (Version None)
Quarter: 2006Q1

REPORT INFORMATION
  Report Type: 
  Country: None (occurrence: None)
  Receive Date: 20060117
  Receipt Date: 20060103
  Transmission Date: 20060701
  Serious: Yes (Life-Threatening, Hospitalization)
  Sender: FDA-Public Use
  Company Number: GXKR2006NL00465

PATIENT
  Age: 47 Year
  Sex: Female

DRUGS (3)
  1. NAPROXEN [Suspect]
     Indication: BACK PAIN
     Dosage: 500 MG, BID, ORAL
     Route: 048
     Dates: start: 20050602, end: 20050605
  2. DIAZEPAM [Suspect]
     Indication: BACK PAIN
     Dosage: 10 MG, TID, ORAL
     Route: 048
     Dates: start: 20050602, end: 20050605
  3. TRAMADOL HCL [Suspect]
     Dosage: 50 MG, TID, ORAL
     Route: 048
     Dates: start: 20050602, end: 20050605

REACTIONS (8)
  - ANAPHYLACTIC REACTION [None]
  - GENERALISED ERYTHEMA [None]
  - GENERALISED OEDEMA [None]
  - HYPOTENSION [None]
  - PALATAL OEDEMA [None]
  - RASH PRURITIC [None]
  - SWELLING [None]
  - SWOLLEN TONGUE [None]
